FAERS Safety Report 9116488 (Version 1)
Quarter: 2013Q1

REPORT INFORMATION
  Report Type: Spontaneous
  Country: US (occurrence: US)
  Receive Date: 20130225
  Receipt Date: 20130225
  Transmission Date: 20140127
  Serious: Yes (Other)
  Sender: FDA-Public Use
  Company Number: US-009507513-1302USA009239

PATIENT
  Age: 24 Week
  Sex: Female
  Weight: .58 kg

DRUGS (1)
  1. INDOCIN I.V. [Suspect]
     Indication: PROPHYLAXIS

REACTIONS (2)
  - Aortic thrombosis [Unknown]
  - Intestinal perforation [Unknown]
